FAERS Safety Report 7343253-2 (Version None)
Quarter: 2011Q1

REPORT INFORMATION
  Report Type: 
  Country: None (occurrence: None)
  Receive Date: 20110310
  Receipt Date: 20110301
  Transmission Date: 20110831
  Serious: Yes (Other)
  Sender: FDA-Public Use
  Company Number: US-US-EMD SERONO, INC.-7006344

PATIENT
  Sex: Female

DRUGS (2)
  1. REBIF [Suspect]
     Indication: MULTIPLE SCLEROSIS
     Route: 058
     Dates: start: 20060101
  2. LIPITOR [Concomitant]

REACTIONS (4)
  - IRITIS [None]
  - ASTIGMATISM [None]
  - INJECTION SITE HAEMATOMA [None]
  - INJECTION SITE PAIN [None]
